FAERS Safety Report 19903131 (Version 2)
Quarter: 2021Q4

REPORT INFORMATION
  Report Type: Spontaneous
  Country: US (occurrence: US)
  Receive Date: 20211001
  Receipt Date: 20211006
  Transmission Date: 20220303
  Serious: Yes (Hospitalization, Other)
  Sender: FDA-Public Use
  Company Number: None

PATIENT

DRUGS (2)
  1. BUPROPION [Interacting]
     Active Substance: BUPROPION
     Dosage: UNK, A LARGE QUANTITY OF EXTENDED RELEASE
     Route: 048
  2. SERTRALINE [Interacting]
     Active Substance: SERTRALINE HYDROCHLORIDE
     Dosage: UNK
     Route: 048

REACTIONS (7)
  - Anterograde amnesia [Recovering/Resolving]
  - Metabolic encephalopathy [Recovering/Resolving]
  - Areflexia [Recovering/Resolving]
  - Myoclonus [Recovering/Resolving]
  - Potentiating drug interaction [Recovering/Resolving]
  - Intentional overdose [Recovering/Resolving]
  - Generalised tonic-clonic seizure [Recovering/Resolving]
